FAERS Safety Report 6899753-2 (Version None)
Quarter: 2010Q3

REPORT INFORMATION
  Report Type: 
  Country: None (occurrence: None)
  Receive Date: 20100803
  Receipt Date: 20070815
  Transmission Date: 20110219
  Serious: Yes (Other)
  Sender: FDA-Public Use
  Company Number: PFIZER INC-2007069829

PATIENT
  Sex: Female
  Weight: 130 kg

DRUGS (5)
  1. LYRICA [Suspect]
     Indication: FIBROMYALGIA
     Dates: start: 20070725
  2. LYRICA [Suspect]
     Indication: NEUROPATHY PERIPHERAL
  3. CYMBALTA [Concomitant]
  4. ESTRADIOL [Concomitant]
  5. LEVOTHYROXINE SODIUM [Concomitant]

REACTIONS (3)
  - HYPOAESTHESIA [None]
  - MYALGIA [None]
  - PAIN IN EXTREMITY [None]
